FAERS Safety Report 17565292 (Version 2)
Quarter: 2020Q1

REPORT INFORMATION
  Report Type: Spontaneous
  Country: FR (occurrence: FR)
  Receive Date: 20200320
  Receipt Date: 20200326
  Transmission Date: 20200409
  Serious: Yes (Hospitalization)
  Sender: FDA-Public Use
  Company Number: FR-LEO PHARMA-328644

PATIENT
  Age: 57 Year
  Sex: Male
  Weight: 90 kg

DRUGS (1)
  1. PICATO [Suspect]
     Active Substance: INGENOL MEBUTATE
     Indication: ACTINIC KERATOSIS
     Dosage: 3 DOSES IN 3 DAYS
     Route: 003
     Dates: start: 20181101, end: 20181104

REACTIONS (1)
  - Sarcoma of skin [Not Recovered/Not Resolved]

NARRATIVE: CASE EVENT DATE: 20181201
